FAERS Safety Report 7850463-4 (Version None)
Quarter: 2011Q4

REPORT INFORMATION
  Report Type: 
  Country: None (occurrence: None)
  Receive Date: 20111026
  Receipt Date: 20111026
  Transmission Date: 20120403
  Serious: Yes (Hospitalization, Other)
  Sender: FDA-Public Use
  Company Number: None

PATIENT
  Sex: Female

DRUGS (7)
  1. ZETIA [Concomitant]
     Route: 048
  2. LIPITOR [Suspect]
     Indication: CORONARY ARTERY DISEASE
     Dosage: 40MG
     Route: 048
     Dates: start: 20020801, end: 20110128
  3. ASPIRIN [Concomitant]
     Route: 048
  4. COZAAR -GENERIC [Concomitant]
     Route: 048
  5. AXCIPHEX [Concomitant]
     Route: 048
  6. TOPROL-XL [Concomitant]
     Route: 048
  7. TRICOR [Concomitant]
     Route: 048

REACTIONS (15)
  - MYALGIA [None]
  - MUSCULOSKELETAL STIFFNESS [None]
  - INSOMNIA [None]
  - PAROSMIA [None]
  - WEIGHT DECREASED [None]
  - BONE PAIN [None]
  - IATROGENIC INJURY [None]
  - HALLUCINATION [None]
  - ERYTHEMA [None]
  - JOINT SWELLING [None]
  - IMPAIRED DRIVING ABILITY [None]
  - FALL [None]
  - DYSGEUSIA [None]
  - GAIT DISTURBANCE [None]
  - MUSCULOSKELETAL PAIN [None]
